FAERS Safety Report 7726129-8 (Version None)
Quarter: 2011Q3

REPORT INFORMATION
  Report Type: 
  Country: None (occurrence: None)
  Receive Date: 20110902
  Receipt Date: 20110825
  Transmission Date: 20111222
  Serious: Yes (Hospitalization)
  Sender: FDA-Public Use
  Company Number: GXBR2011US04630

PATIENT
  Sex: Female

DRUGS (1)
  1. TIZANIDINE HYDROCHLORIDE [Suspect]
     Indication: MUSCLE SPASMS
     Dosage: 4 MG, QID2SDO
     Route: 048

REACTIONS (4)
  - LOSS OF CONSCIOUSNESS [None]
  - BLOOD PRESSURE FLUCTUATION [None]
  - CONVULSION [None]
  - WITHDRAWAL SYNDROME [None]
